FAERS Safety Report 7788666-X (Version None)
Quarter: 2011Q3

REPORT INFORMATION
  Report Type: 
  Country: None (occurrence: None)
  Receive Date: 20110928
  Receipt Date: 20110913
  Transmission Date: 20111222
  Serious: Yes (Other)
  Sender: FDA-Public Use
  Company Number: FR-ACCORD-010688

PATIENT
  Age: 21 Year
  Sex: Female

DRUGS (1)
  1. TACROLIMUS [Suspect]
     Indication: PRODUCT USED FOR UNKNOWN INDICATION

REACTIONS (3)
  - NEPHROPATHY TOXIC [None]
  - RENAL TUBULAR NECROSIS [None]
  - VIRAL DIARRHOEA [None]
